FAERS Safety Report 12664535 (Version 13)
Quarter: 2017Q2

REPORT INFORMATION
  Report Type: Spontaneous
  Country: US (occurrence: US)
  Receive Date: 20160818
  Receipt Date: 20170515
  Transmission Date: 20170830
  Serious: Yes (Other)
  Sender: FDA-Public Use
  Company Number: US-PFIZER INC-2016390676

PATIENT
  Age: 54 Year
  Sex: Female
  Weight: 79 kg

DRUGS (8)
  1. TRAMADOL. [Concomitant]
     Active Substance: TRAMADOL
     Indication: PAIN
     Dosage: UNK
  2. LYRICA [Suspect]
     Active Substance: PREGABALIN
     Indication: FIBROMYALGIA
     Dosage: 100 MG, TWICE A DAY
     Route: 048
     Dates: start: 2009
  3. PLAQUENIL [Suspect]
     Active Substance: HYDROXYCHLOROQUINE SULFATE
     Indication: RHEUMATOID ARTHRITIS
     Dosage: 200 MG, TWICE A DAY
     Route: 048
     Dates: start: 19970630, end: 20111109
  4. ASPIRIN. [Concomitant]
     Active Substance: ASPIRIN
     Dosage: UNK
  5. ENBREL [Concomitant]
     Active Substance: ETANERCEPT
     Indication: RHEUMATOID ARTHRITIS
     Dosage: 50 MG, UNK
     Dates: start: 200601
  6. LYRICA [Suspect]
     Active Substance: PREGABALIN
     Dosage: UNK
  7. EFFEXOR XR [Concomitant]
     Active Substance: VENLAFAXINE HYDROCHLORIDE
     Dosage: UNK
  8. SOMACID [Concomitant]
     Dosage: UNK

REACTIONS (2)
  - Retinal toxicity [Recovered/Resolved]
  - Dry age-related macular degeneration [Recovered/Resolved]

NARRATIVE: CASE EVENT DATE: 1999
